FAERS Safety Report 5211459-4 (Version None)
Quarter: 2006Q4

REPORT INFORMATION
  Report Type: 
  Country: None (occurrence: None)
  Receive Date: 20061115
  Receipt Date: 20060823
  Transmission Date: 20070319
  Serious: No
  Sender: FDA-Public Use
  Company Number: 200617052US

PATIENT
  Age: 72 Year
  Sex: Female
  Weight: 76.36 kg

DRUGS (9)
  1. APIDRA [Suspect]
     Indication: DIABETES MELLITUS
     Dosage: 8 U
     Dates: start: 20060101
  2. OPTICLIK [Suspect]
     Indication: DIABETES MELLITUS
  3. METFORMIN HCL [Concomitant]
  4. PAIN PILLS [Concomitant]
  5. OTHER MEDICATIONS [Concomitant]
  6. APIDRA [Suspect]
     Indication: DIABETES MELLITUS
     Dosage: 18 U QD
     Dates: start: 20060101
  7. APIDRA [Suspect]
     Indication: DIABETES MELLITUS
     Dosage: 59 U QD
     Dates: start: 20060101
  8. APIDRA [Suspect]
     Indication: DIABETES MELLITUS
     Dosage: 69 U QD
     Dates: start: 20060101
  9. OPTICLICK [Suspect]
     Indication: DIABETES MELLITUS

REACTIONS (1)
  - NO ADVERSE DRUG EFFECT [None]
